FAERS Safety Report 8860524 (Version 4)
Quarter: 2013Q2

REPORT INFORMATION
  Report Type: Report from Study
  Country: JP (occurrence: JP)
  Receive Date: 20121025
  Receipt Date: 20130514
  Transmission Date: 20140414
  Serious: Yes (Hospitalization, Other)
  Sender: FDA-Public Use
  Company Number: JP-VERTEX PHARMACEUTICAL INC.-2012-023373

PATIENT
  Age: 60 Year
  Sex: Male

DRUGS (23)
  1. VX-950 (TELAPREVIR) [Suspect]
     Indication: CHRONIC HEPATITIS C
     Dosage: 2250 MG, QD
     Route: 048
     Dates: start: 20120822, end: 20120822
  2. VX-950 (TELAPREVIR) [Suspect]
     Dosage: 1500 MG, QD
     Route: 048
     Dates: start: 20120823, end: 20120824
  3. VX-950 (TELAPREVIR) [Suspect]
     Dosage: 1000 MG, QD
     Route: 048
     Dates: start: 20120825, end: 20120827
  4. VX-950 (TELAPREVIR) [Suspect]
     Dosage: 1250 MG, QD
     Route: 048
     Dates: start: 20120828, end: 20120903
  5. VX-950 (TELAPREVIR) [Suspect]
     Dosage: 1500 MG, QD
     Route: 048
     Dates: start: 20120904, end: 20120925
  6. VX-950 (TELAPREVIR) [Suspect]
     Dosage: 1250 MG, QD
     Route: 048
     Dates: start: 20120926, end: 20121023
  7. VX-950 (TELAPREVIR) [Suspect]
     Dosage: 1000 MG, QD
     Route: 048
     Dates: start: 20121024, end: 20121114
  8. RIBAVIRIN [Suspect]
     Indication: CHRONIC HEPATITIS C
     Dosage: 600 MG, QD
     Route: 048
     Dates: start: 20120822, end: 20120824
  9. RIBAVIRIN [Suspect]
     Dosage: 400 MG, QD
     Route: 048
     Dates: start: 20120825, end: 20120918
  10. RIBAVIRIN [Suspect]
     Dosage: 200 MG, QD
     Route: 048
     Dates: start: 20120919, end: 20121127
  11. RIBAVIRIN [Suspect]
     Dosage: 400 MG, QD
     Route: 048
     Dates: start: 20121128, end: 20130108
  12. RIBAVIRIN [Suspect]
     Dosage: 600 MG, QD
     Route: 048
     Dates: start: 20130109, end: 20130206
  13. PEGINTERFERON ALFA-2B [Suspect]
     Indication: CHRONIC HEPATITIS C
     Dosage: 1.5 ?G/KG, QW
     Route: 058
     Dates: start: 20120822, end: 20130206
  14. NEOPHAGEN [Concomitant]
     Dosage: 100 ML, QD
     Route: 042
     Dates: end: 20120921
  15. NU-LOTAN [Concomitant]
     Dosage: 50 MG, QD
     Route: 048
  16. TAKEPRON [Concomitant]
     Dosage: 15 MG, QD
     Route: 048
  17. ALLELOCK [Concomitant]
     Dosage: 10 MG, QD
     Route: 048
  18. JANUVIA [Concomitant]
     Dosage: 50 MG, QD
     Route: 048
  19. AMARYL [Concomitant]
     Dosage: 0.5 MG, QD
     Route: 048
  20. TANATRIL [Concomitant]
     Dosage: 5 MG, QD
     Route: 048
     Dates: start: 20120822, end: 20121127
  21. ARTIST [Concomitant]
     Dosage: 20 MG, QD
     Route: 048
     Dates: start: 20120822, end: 20130206
  22. ALOSITOL [Concomitant]
     Dosage: 200 MG, QD
     Route: 048
     Dates: start: 20120822
  23. LACTEC [Concomitant]
     Dosage: 1000 ML, QD
     Route: 042
     Dates: start: 20120822, end: 20120921

REACTIONS (3)
  - Renal impairment [Recovered/Resolved]
  - Anaemia [Recovered/Resolved]
  - Anaemia [Not Recovered/Not Resolved]
